FAERS Safety Report 23341828 (Version 1)
Quarter: 2023Q4

REPORT INFORMATION
  Report Type: Spontaneous
  Country: BE (occurrence: BE)
  Receive Date: 20231227
  Receipt Date: 20231227
  Transmission Date: 20240110
  Serious: Yes (Death)
  Sender: FDA-Public Use
  Company Number: BE-SANDOZ-SDZ2023BE015649

PATIENT
  Sex: Female

DRUGS (2)
  1. FLUCLOXACILLIN [Suspect]
     Active Substance: FLUCLOXACILLIN
     Indication: Staphylococcal infection
     Dosage: UNK
     Route: 065
  2. ACETAMINOPHEN [Suspect]
     Active Substance: ACETAMINOPHEN
     Indication: Staphylococcal infection
     Dosage: UNK
     Route: 065

REACTIONS (2)
  - Metabolic acidosis [Fatal]
  - Labelled drug-drug interaction medication error [Unknown]
